FAERS Safety Report 5746209-6 (Version None)
Quarter: 2008Q2

REPORT INFORMATION
  Report Type: 
  Country: None (occurrence: None)
  Receive Date: 20080522
  Receipt Date: 20080516
  Transmission Date: 20081010
  Serious: Yes (Other)
  Sender: FDA-Public Use
  Company Number: DE-ROCHE-544437

PATIENT
  Sex: Female
  Weight: 55 kg

DRUGS (2)
  1. MIRCERA [Suspect]
     Route: 042
     Dates: start: 20071102, end: 20071102
  2. MIRCERA [Suspect]
     Route: 042
     Dates: start: 20071203, end: 20071203

REACTIONS (2)
  - BLOOD PRESSURE INCREASED [None]
  - MIGRAINE [None]
